FAERS Safety Report 12901421 (Version 1)
Quarter: 2016Q4

REPORT INFORMATION
  Report Type: Spontaneous
  Country: US (occurrence: US)
  Receive Date: 20161101
  Receipt Date: 20161101
  Transmission Date: 20170207
  Serious: Yes (Other)
  Sender: FDA-Public Use
  Company Number: US-BEH-2016074689

PATIENT
  Age: 51 Year
  Sex: Female
  Weight: 74.83 kg

DRUGS (6)
  1. PRIVIGEN [Suspect]
     Active Substance: HUMAN IMMUNOGLOBULIN G
     Indication: IMMUNODEFICIENCY
     Dosage: 30 MG, QMT
     Route: 042
     Dates: start: 201511
  2. TRAMADOL. [Concomitant]
     Active Substance: TRAMADOL
  3. PRIVIGEN [Suspect]
     Active Substance: HUMAN IMMUNOGLOBULIN G
     Dosage: UNK
     Route: 042
  4. SOLU-MEDROL [Suspect]
     Active Substance: METHYLPREDNISOLONE SODIUM SUCCINATE
     Indication: ADVERSE DRUG REACTION
     Dosage: 125 MG, QMT
     Route: 042
     Dates: start: 201602
  5. BENADRYL [Concomitant]
     Active Substance: DIPHENHYDRAMINE HYDROCHLORIDE
  6. TYLENOL [Concomitant]
     Active Substance: ACETAMINOPHEN

REACTIONS (9)
  - Middle insomnia [Recovered/Resolved]
  - Meningitis aseptic [Recovered/Resolved]
  - Diarrhoea [Recovered/Resolved]
  - Uterine leiomyoma [Unknown]
  - Vomiting [Recovered/Resolved]
  - Headache [Recovered/Resolved]
  - Amenorrhoea [Recovering/Resolving]
  - Meningitis aseptic [Recovered/Resolved]
  - Amenorrhoea [Unknown]

NARRATIVE: CASE EVENT DATE: 201511
